FAERS Safety Report 16689359 (Version 2)
Quarter: 2019Q3

REPORT INFORMATION
  Report Type: Spontaneous
  Country: MX (occurrence: MX)
  Receive Date: 20190809
  Receipt Date: 20190826
  Transmission Date: 20191004
  Serious: Yes (Life-Threatening, Hospitalization, Other)
  Sender: FDA-Public Use
  Company Number: MX-BAYER-2019-147922

PATIENT
  Age: 22 Month
  Sex: Male

DRUGS (8)
  1. ACICLOVIR [Concomitant]
     Active Substance: ACYCLOVIR
     Dosage: 30 MG/KG, QD
  2. AMIKACIN. [Concomitant]
     Active Substance: AMIKACIN
     Dosage: 15 MG/KG, QD
  3. KETOROLAC [Concomitant]
     Active Substance: KETOROLAC TROMETHAMINE
     Dosage: UNK
  4. METRONIDAZOLE. [Concomitant]
     Active Substance: METRONIDAZOLE
     Dosage: 40 MG/KG, QD
  5. PARACETAMOL [Concomitant]
     Active Substance: ACETAMINOPHEN
     Indication: PYREXIA
     Dosage: UNK
  6. NAPROXEN SODIUM ({= 220 MG) [Suspect]
     Active Substance: NAPROXEN SODIUM
     Indication: PYREXIA
     Dosage: UNK
  7. CLINDAMYCIN. [Concomitant]
     Active Substance: CLINDAMYCIN
     Dosage: 40 MG/KG, QD
  8. CEFOTAXIME [Concomitant]
     Active Substance: CEFOTAXIME SODIUM
     Dosage: 100 MG/KG, QD

REACTIONS (13)
  - Blood blister [Recovered/Resolved]
  - Candida infection [Recovered/Resolved]
  - Acquired phimosis [Recovered/Resolved]
  - Streptococcal abscess [Recovered/Resolved]
  - Fournier^s gangrene [Recovered/Resolved]
  - Escherichia infection [Recovered/Resolved]
  - Cellulitis [Recovered/Resolved]
  - Staphylococcal abscess [Recovered/Resolved]
  - Enterococcal infection [Recovered/Resolved]
  - Cellulitis of male external genital organ [Recovered/Resolved]
  - Self-medication [Recovered/Resolved]
  - Scab [Recovered/Resolved]
  - Perineal cellulitis [Recovered/Resolved]
